FAERS Safety Report 15673292 (Version 1)
Quarter: 2018Q4

REPORT INFORMATION
  Report Type: Spontaneous
  Country: US (occurrence: US)
  Receive Date: 20181129
  Receipt Date: 20181129
  Transmission Date: 20190205
  Serious: No
  Sender: FDA-Public Use
  Company Number: US-PFIZER INC-2018185826

PATIENT
  Age: 58 Year
  Sex: Female
  Weight: 90.63 kg

DRUGS (6)
  1. VALIUM [Concomitant]
     Active Substance: DIAZEPAM
     Indication: VERTIGO
     Dosage: 10 MG, 1X/DAY
     Route: 048
     Dates: start: 1978, end: 20181116
  2. VALIUM [Concomitant]
     Active Substance: DIAZEPAM
     Indication: TINNITUS
  3. VALACYCLOVIR HCL [Concomitant]
     Active Substance: VALACYCLOVIR HYDROCHLORIDE
     Indication: ORAL HERPES
     Dosage: 500 MG, 1X/DAY
     Dates: start: 2017
  4. EFFEXOR XR [Suspect]
     Active Substance: VENLAFAXINE HYDROCHLORIDE
     Indication: HOT FLUSH
     Dosage: 150 MG, 1X/DAY
     Route: 048
     Dates: start: 2017
  5. LETROZOLE. [Concomitant]
     Active Substance: LETROZOLE
     Indication: HORMONE SUPPRESSION THERAPY
     Dosage: 2.5 MG, 1X/DAY
     Route: 048
     Dates: start: 20170325
  6. IBRANCE [Concomitant]
     Active Substance: PALBOCICLIB
     Indication: BREAST CANCER METASTATIC
     Dosage: 100 MG, 1X/DAY
     Route: 048
     Dates: start: 20170325

REACTIONS (1)
  - Drug effective for unapproved indication [Unknown]
